FAERS Safety Report 24324674 (Version 1)
Quarter: 2024Q3

REPORT INFORMATION
  Report Type: Spontaneous
  Country: US (occurrence: US)
  Receive Date: 20240916
  Receipt Date: 20240916
  Transmission Date: 20241016
  Serious: Yes (Death, Other)
  Sender: AMGEN
  Company Number: US-AMGEN-USASP2024182420

PATIENT

DRUGS (13)
  1. PREDNISONE [Suspect]
     Active Substance: PREDNISONE
     Indication: Plasma cell myeloma refractory
     Dosage: 60 MILLIGRAM, QD (PO OR IV) ON DAYS 2-4 OF EACH CYCLE
     Route: 048
  2. PREDNISONE [Suspect]
     Active Substance: PREDNISONE
     Dosage: 60 MILLIGRAM, QD (PO OR IV) ON DAYS 2-4 OF EACH CYCLE
     Route: 042
  3. ISATUXIMAB [Concomitant]
     Active Substance: ISATUXIMAB
     Indication: Plasma cell myeloma refractory
     Dosage: 10 MILLIGRAM/KILOGRAM, QWK
     Route: 042
  4. DIPHENHYDRAMINE [Concomitant]
     Active Substance: DIPHENHYDRAMINE
     Dosage: UNK, 25 TO 50 MG IV (OR BY MOUTH)
     Route: 065
  5. ACETAMINOPHEN [Concomitant]
     Active Substance: ACETAMINOPHEN
     Indication: Prophylaxis
     Dosage: UNK, 650 TO 1000 MG ORALLY 15 TO 30 MINUTES
  6. MONTELUKAST [Concomitant]
     Active Substance: MONTELUKAST SODIUM
     Indication: Prophylaxis
     Dosage: 10 MILLIGRAM
     Route: 065
  7. BENDAMUSTINE [Concomitant]
     Active Substance: BENDAMUSTINE
     Indication: Plasma cell myeloma refractory
     Dosage: 50 MILLIGRAM/SQ. METER
     Route: 065
  8. BENDAMUSTINE [Concomitant]
     Active Substance: BENDAMUSTINE
     Dosage: 75 MILLIGRAM/SQ. METER
     Route: 065
  9. BENDAMUSTINE [Concomitant]
     Active Substance: BENDAMUSTINE
     Dosage: 100 MILLIGRAM/SQ. METER
     Route: 065
  10. ACYCLOVIR [Concomitant]
     Active Substance: ACYCLOVIR
     Indication: Antiviral treatment
     Dosage: 800 MILLIGRAM, QD
     Route: 048
  11. PREVACID [Concomitant]
     Active Substance: LANSOPRAZOLE
     Indication: Plasma cell myeloma refractory
     Dosage: 15 MILLIGRAM, QD
     Route: 048
  12. METHYLPREDNISOLONE [Concomitant]
     Active Substance: METHYLPREDNISOLONE
     Indication: Prophylaxis
     Dosage: 100 MILLIGRAM
     Route: 042
  13. DARATUMUMAB [Concomitant]
     Active Substance: DARATUMUMAB
     Indication: Plasma cell myeloma refractory

REACTIONS (126)
  - Sepsis [Fatal]
  - Respiratory failure [Fatal]
  - Plasma cell myeloma refractory [Fatal]
  - COVID-19 [Fatal]
  - Haemophagocytic lymphohistiocytosis [Unknown]
  - Atrial fibrillation [Unknown]
  - Cardiac failure [Unknown]
  - Basal cell carcinoma [Unknown]
  - Glaucoma [Unknown]
  - Hyperkalaemia [Unknown]
  - Pneumonia [Unknown]
  - Immune thrombocytopenia [Unknown]
  - Bell^s palsy [Unknown]
  - Hydronephrosis [Unknown]
  - Electrocardiogram QT prolonged [Unknown]
  - Hypoxia [Unknown]
  - Syncope [Unknown]
  - Acute kidney injury [Unknown]
  - Urinary retention [Unknown]
  - Hepatic failure [Unknown]
  - Thrombocytopenia [Unknown]
  - Neutropenia [Unknown]
  - Febrile neutropenia [Unknown]
  - Histiocytosis [Unknown]
  - Bacteraemia [Unknown]
  - Hypokalaemia [Unknown]
  - Upper gastrointestinal haemorrhage [Unknown]
  - Lymphocyte count decreased [Unknown]
  - Neutrophil count decreased [Unknown]
  - Platelet count decreased [Unknown]
  - White blood cell count decreased [Unknown]
  - Anaemia [Unknown]
  - Upper respiratory tract infection [Unknown]
  - Sinus bradycardia [Unknown]
  - Sinus tachycardia [Unknown]
  - Hypercalcaemia [Unknown]
  - Diarrhoea [Unknown]
  - Fatigue [Unknown]
  - Oedema peripheral [Unknown]
  - Back pain [Unknown]
  - Hypertension [Unknown]
  - Muscular weakness [Unknown]
  - Decreased appetite [Unknown]
  - Proteinuria [Unknown]
  - Therapy non-responder [Unknown]
  - Pyrexia [Unknown]
  - Chills [Unknown]
  - Vomiting [Unknown]
  - Influenza like illness [Unknown]
  - Injection site reaction [Unknown]
  - Malaise [Unknown]
  - Non-cardiac chest pain [Unknown]
  - Thirst [Unknown]
  - Pain [Unknown]
  - Candida infection [Unknown]
  - Sinusitis [Unknown]
  - Eructation [Unknown]
  - Abdominal distension [Unknown]
  - Tooth infection [Unknown]
  - Urinary tract infection [Unknown]
  - Contusion [Unknown]
  - Eye pain [Unknown]
  - Infusion related reaction [Unknown]
  - Activated partial thromboplastin time prolonged [Unknown]
  - Alanine aminotransferase increased [Unknown]
  - Blood alkaline phosphatase increased [Unknown]
  - Aspartate aminotransferase increased [Unknown]
  - Blood bilirubin increased [Unknown]
  - Blood lactate dehydrogenase increased [Unknown]
  - Troponin I increased [Unknown]
  - Blood creatinine increased [Unknown]
  - Ejection fraction decreased [Unknown]
  - International normalised ratio increased [Unknown]
  - Weight decreased [Unknown]
  - Dehydration [Unknown]
  - Hyperglycaemia [Unknown]
  - Hypermagnesaemia [Unknown]
  - Hyperphosphataemia [Unknown]
  - Hyperuricaemia [Unknown]
  - Hypoalbuminaemia [Unknown]
  - Hypocalcaemia [Unknown]
  - Hypomagnesaemia [Unknown]
  - Hyponatraemia [Unknown]
  - Hypophosphataemia [Unknown]
  - Palpitations [Unknown]
  - Muscle spasms [Unknown]
  - Neck pain [Unknown]
  - Pain in extremity [Unknown]
  - Dizziness [Unknown]
  - Extrapyramidal disorder [Unknown]
  - Headache [Unknown]
  - Lethargy [Unknown]
  - Peripheral motor neuropathy [Unknown]
  - Somnolence [Unknown]
  - Agitation [Unknown]
  - Anxiety [Unknown]
  - Confusional state [Unknown]
  - Insomnia [Unknown]
  - Restlessness [Unknown]
  - Haematuria [Unknown]
  - Pollakiuria [Unknown]
  - Urinary incontinence [Unknown]
  - Rhinitis allergic [Unknown]
  - Atelectasis [Unknown]
  - Cough [Unknown]
  - Dyspnoea [Unknown]
  - Epistaxis [Unknown]
  - Hiccups [Unknown]
  - Nasal congestion [Unknown]
  - Pleural effusion [Unknown]
  - Sinus pain [Unknown]
  - Wheezing [Unknown]
  - Dry skin [Unknown]
  - Eczema [Unknown]
  - Hyperhidrosis [Unknown]
  - Pruritus [Unknown]
  - Skin ulcer [Unknown]
  - Hypotension [Unknown]
  - Oral pain [Unknown]
  - Nausea [Unknown]
  - Dyspepsia [Unknown]
  - Constipation [Unknown]
  - Anal incontinence [Unknown]
  - Toxicity to various agents [Unknown]
  - Haemorrhage [Unknown]
  - Off label use [Unknown]
